FAERS Safety Report 11240816 (Version 3)
Quarter: 2016Q2

REPORT INFORMATION
  Report Type: Spontaneous
  Country: US (occurrence: US)
  Receive Date: 20150706
  Receipt Date: 20160601
  Transmission Date: 20160815
  Serious: Yes (Hospitalization, Other)
  Sender: FDA-Public Use
  Company Number: US-PFIZER INC-2015220727

PATIENT
  Age: 67 Year
  Sex: Male

DRUGS (1)
  1. AMIODARONE [Suspect]
     Active Substance: AMIODARONE
     Indication: ATRIAL FIBRILLATION
     Dosage: 400 MG, 2X/DAY
     Route: 048
     Dates: start: 20141012, end: 20141126

REACTIONS (5)
  - Pulmonary fibrosis [Unknown]
  - Pneumothorax [Unknown]
  - Ventricular fibrillation [Unknown]
  - Aortic aneurysm [Unknown]
  - Pulmonary oedema [Unknown]
